FAERS Safety Report 4732736-7 (Version None)
Quarter: 2005Q3

REPORT INFORMATION
  Report Type: 
  Country: None (occurrence: None)
  Receive Date: 20050803
  Receipt Date: 20030429
  Transmission Date: 20060218
  Serious: Yes (Other)
  Sender: FDA-Public Use
  Company Number: US-GLAXOSMITHKLINE-A0406594A

PATIENT
  Sex: Female

DRUGS (11)
  1. PAXIL [Suspect]
     Indication: DEPRESSION
     Dosage: 40MG PER DAY
     Route: 048
  2. MORPHINE SULFATE [Concomitant]
  3. RISPERDAL [Concomitant]
     Indication: DEPRESSION
  4. DUONEB [Concomitant]
     Indication: DRUG USE FOR UNKNOWN INDICATION
     Route: 055
  5. LORAZEPAM [Concomitant]
     Indication: ANXIETY
  6. ADVAIR DISKUS 100/50 [Concomitant]
     Indication: ASTHMA
     Route: 055
  7. ALBUTEROL [Concomitant]
     Indication: ASTHMA
     Route: 055
  8. FLEXERIL [Concomitant]
     Dosage: 10MG THREE TIMES PER DAY
     Route: 048
  9. NEURONTIN [Concomitant]
     Dosage: 300MG THREE TIMES PER DAY
     Route: 048
  10. MS CONTIN [Concomitant]
     Dosage: 100MG TWICE PER DAY
     Route: 048
     Dates: start: 20000101
  11. METHADONE [Concomitant]
     Indication: DRUG WITHDRAWAL SYNDROME
     Dosage: 10MG THREE TIMES PER DAY
     Route: 048
     Dates: start: 20040114

REACTIONS (6)
  - CRYING [None]
  - DRUG DEPENDENCE [None]
  - DRUG WITHDRAWAL SYNDROME [None]
  - HEADACHE [None]
  - SUICIDAL IDEATION [None]
  - VISION BLURRED [None]
